FAERS Safety Report 10006384 (Version 1)
Quarter: 2014Q1

REPORT INFORMATION
  Report Type: Spontaneous
  Country: IN (occurrence: IN)
  Receive Date: 20140313
  Receipt Date: 20140313
  Transmission Date: 20141002
  Serious: Yes (Death, Other)
  Sender: FDA-Public Use
  Company Number: 2014SP001407

PATIENT
  Age: 63 Year
  Sex: Female

DRUGS (5)
  1. PACLITAXEL [Suspect]
     Indication: OESOPHAGEAL CARCINOMA
  2. DOCETAXEL [Suspect]
     Indication: OESOPHAGEAL CARCINOMA
     Dates: start: 201209, end: 201212
  3. CISPLATIN [Concomitant]
     Indication: OESOPHAGEAL CARCINOMA
     Dates: start: 201209, end: 201212
  4. CARBOPLATIN [Concomitant]
     Indication: OESOPHAGEAL CARCINOMA
  5. FLUOROURACIL [Concomitant]
     Indication: OESOPHAGEAL CARCINOMA
     Dates: start: 201209, end: 201212

REACTIONS (4)
  - Pneumonitis [Fatal]
  - Chest pain [Not Recovered/Not Resolved]
  - Cough [Not Recovered/Not Resolved]
  - Dyspnoea [Not Recovered/Not Resolved]
